FAERS Safety Report 9551342 (Version 1)
Quarter: 2013Q3

REPORT INFORMATION
  Report Type: Report from Study
  Country: HK (occurrence: HK)
  Receive Date: 20130925
  Receipt Date: 20130925
  Transmission Date: 20140515
  Serious: Yes (Hospitalization)
  Sender: FDA-Public Use
  Company Number: HK-BRISTOL-MYERS SQUIBB COMPANY-19411222

PATIENT
  Age: 42 Year
  Sex: Female
  Weight: 54 kg

DRUGS (3)
  1. CETUXIMAB [Suspect]
     Indication: TONGUE NEOPLASM MALIGNANT STAGE UNSPECIFIED
     Route: 042
     Dates: start: 20130619
  2. LISINOPRIL [Concomitant]
     Dates: start: 20130421
  3. CHLORHEXIDINE GLUCONATE [Concomitant]
     Dosage: MOUTHWASH
     Dates: start: 20130527

REACTIONS (1)
  - Dizziness [Recovered/Resolved]
